FAERS Safety Report 14255712 (Version 1)
Quarter: 2017Q4

REPORT INFORMATION
  Report Type: Spontaneous
  Country: US (occurrence: US)
  Receive Date: 20171206
  Receipt Date: 20171206
  Transmission Date: 20180321
  Serious: No
  Sender: FDA-Public Use
  Company Number: US-NODEN PHARMA DAC-NOD-2017-000077

PATIENT
  Sex: Female

DRUGS (1)
  1. TEKTURNA [Suspect]
     Active Substance: ALISKIREN HEMIFUMARATE
     Indication: HYPERTENSION
     Dosage: 150 MG, QD
     Route: 048

REACTIONS (1)
  - Anxiety [Not Recovered/Not Resolved]
